FAERS Safety Report 6599955-9 (Version None)
Quarter: 2010Q1

REPORT INFORMATION
  Report Type: 
  Country: None (occurrence: None)
  Receive Date: 20100217
  Receipt Date: 20100209
  Transmission Date: 20100710
  Serious: Yes (Hospitalization)
  Sender: FDA-Public Use
  Company Number: 1000011740

PATIENT
  Age: 38 Year
  Sex: Male

DRUGS (2)
  1. LEXAPRO [Suspect]
     Indication: ANXIETY
     Dosage: 10 MG (10 MG, 1 IN 1 D), ORAL; 5 MG( 5 MG 1 IN 1 D),ORAL
     Route: 048
     Dates: start: 20060801, end: 20100203
  2. LEXAPRO [Suspect]
     Indication: ANXIETY
     Dosage: 10 MG (10 MG, 1 IN 1 D), ORAL; 5 MG( 5 MG 1 IN 1 D),ORAL
     Route: 048
     Dates: start: 20100204, end: 20100208

REACTIONS (7)
  - ATRIAL FIBRILLATION [None]
  - FEELING COLD [None]
  - HOT FLUSH [None]
  - INFLUENZA LIKE ILLNESS [None]
  - INSOMNIA [None]
  - SUPRAVENTRICULAR EXTRASYSTOLES [None]
  - TACHYCARDIA [None]
